FAERS Safety Report 5279004-5 (Version None)
Quarter: 2007Q1

REPORT INFORMATION
  Report Type: 
  Country: None (occurrence: None)
  Receive Date: 20070328
  Receipt Date: 20060928
  Transmission Date: 20070707
  Serious: No
  Sender: FDA-Public Use
  Company Number: US-AMGEN-US195034

PATIENT
  Age: 54 Year
  Sex: Female

DRUGS (3)
  1. NEULASTA [Suspect]
     Indication: CHEMOTHERAPY
     Route: 065
  2. CISPLATIN [Concomitant]
     Route: 065
  3. TAXOL [Concomitant]

REACTIONS (1)
  - MUSCULOSKELETAL CHEST PAIN [None]
